FAERS Safety Report 19618808 (Version 2)
Quarter: 2022Q2

REPORT INFORMATION
  Report Type: Spontaneous
  Country: US (occurrence: None)
  Receive Date: 20210727
  Receipt Date: 20220621
  Transmission Date: 20220721
  Serious: No
  Sender: FDA-Public Use
  Company Number: US-ROCHE-2765347

PATIENT
  Sex: Male

DRUGS (5)
  1. XELODA [Suspect]
     Active Substance: CAPECITABINE
     Indication: Retroperitoneal cancer
     Dosage: TOTAL DOSE: 1300 MG FOR 14 DAYS OF A 28 DAYS CYCLE
     Route: 048
  2. XELODA [Suspect]
     Active Substance: CAPECITABINE
     Indication: Laryngeal neoplasm
     Route: 048
  3. XELODA [Suspect]
     Active Substance: CAPECITABINE
     Indication: Neuroendocrine tumour
     Route: 048
     Dates: start: 202110
  4. XELODA [Suspect]
     Active Substance: CAPECITABINE
     Indication: Metastases to peritoneum
     Route: 048
     Dates: start: 202110
  5. TEMOZOLOMIDE [Suspect]
     Active Substance: TEMOZOLOMIDE
     Indication: Product used for unknown indication
     Route: 065

REACTIONS (2)
  - Rash [Unknown]
  - Off label use [Unknown]
